FAERS Safety Report 9658473 (Version 2)
Quarter: 2013Q4

REPORT INFORMATION
  Report Type: Spontaneous
  Country: US (occurrence: US)
  Receive Date: 20131030
  Receipt Date: 20131030
  Transmission Date: 20140711
  Serious: No
  Sender: FDA-Public Use
  Company Number: US-PURDUE-USA-2012-0084730

PATIENT
  Age: 37 Year
  Sex: Male

DRUGS (1)
  1. OXYCONTIN (NDA 22-272) [Suspect]
     Indication: PAIN
     Dosage: 80 MG, TID
     Dates: start: 20120122

REACTIONS (7)
  - Skin exfoliation [Unknown]
  - Inadequate analgesia [Unknown]
  - Pruritus [Unknown]
  - Eczema [Unknown]
  - Gastrooesophageal reflux disease [Unknown]
  - Chest pain [Unknown]
  - Abdominal discomfort [Unknown]
